FAERS Safety Report 5931222-6 (Version None)
Quarter: 2008Q4

REPORT INFORMATION
  Report Type: 
  Country: None (occurrence: None)
  Receive Date: 20081027
  Receipt Date: 20081016
  Transmission Date: 20090506
  Serious: No
  Sender: FDA-Public Use
  Company Number: JP-EISAI MEDIAL RESEARCH-E3810-02195-SPO-JP

PATIENT
  Age: 72 Year
  Sex: Female

DRUGS (4)
  1. RABEPRAZOLE SODIUM [Suspect]
     Indication: HELICOBACTER INFECTION
     Route: 048
     Dates: start: 20080917, end: 20080919
  2. LANSOPRAZOLE [Suspect]
     Dosage: UNKNOWN
     Route: 048
     Dates: start: 20080917
  3. AMOXICILLIN [Suspect]
     Route: 048
     Dates: start: 20080917, end: 20080919
  4. CLARITHROMYCIN [Suspect]
     Indication: HELICOBACTER INFECTION
     Route: 048
     Dates: start: 20080917, end: 20080919

REACTIONS (2)
  - ABDOMINAL PAIN [None]
  - MELAENA [None]
